FAERS Safety Report 18245220 (Version 1)
Quarter: 2020Q3

REPORT INFORMATION
  Report Type: Spontaneous
  Country: US (occurrence: US)
  Receive Date: 20200909
  Receipt Date: 20200909
  Transmission Date: 20201103
  Serious: No
  Sender: FDA-Public Use
  Company Number: US-ASTRAZENECA-2020SF01497

PATIENT
  Age: 20069 Day
  Sex: Female

DRUGS (3)
  1. GLIPIZIDE ER [Concomitant]
     Active Substance: GLIPIZIDE
     Dosage: 5.0MG UNKNOWN
  2. JANUVIA [Concomitant]
     Active Substance: SITAGLIPTIN PHOSPHATE
     Dosage: 100.0MG UNKNOWN
  3. BYDUREON [Suspect]
     Active Substance: EXENATIDE
     Indication: TYPE 2 DIABETES MELLITUS
     Dosage: 2.0MG UNKNOWN
     Route: 058
     Dates: start: 20200724, end: 20200808

REACTIONS (2)
  - Intentional product misuse [Unknown]
  - Blood glucose increased [Not Recovered/Not Resolved]

NARRATIVE: CASE EVENT DATE: 20200725
